FAERS Safety Report 17307604 (Version 1)
Quarter: 2020Q1

REPORT INFORMATION
  Report Type: Spontaneous
  Country: US (occurrence: US)
  Receive Date: 20200123
  Receipt Date: 20200123
  Transmission Date: 20200409
  Serious: No
  Sender: FDA-Public Use
  Company Number: US-BRISTOL-MYERS SQUIBB COMPANY-BMS-2020-003992

PATIENT
  Sex: Female

DRUGS (2)
  1. SERENITY (HUMULUS LUPULUS\PASSIFLORA INCARNATA\VALERIANA OFFICINALIS ROOT) [Interacting]
     Active Substance: HERBALS\HOPS\VALERIAN
     Indication: INSOMNIA
     Dosage: UNK
     Route: 065
  2. ELIQUIS [Suspect]
     Active Substance: APIXABAN
     Indication: CEREBROVASCULAR ACCIDENT PROPHYLAXIS
     Dosage: UNK, BID
     Route: 048
     Dates: start: 2016

REACTIONS (2)
  - Drug interaction [Unknown]
  - Insomnia [Unknown]
